FAERS Safety Report 17142716 (Version 1)
Quarter: 2019Q4

REPORT INFORMATION
  Report Type: Spontaneous
  Country: US (occurrence: US)
  Receive Date: 20191211
  Receipt Date: 20191211
  Transmission Date: 20200122
  Serious: Yes (Hospitalization, Other)
  Sender: FDA-Public Use
  Company Number: US-NOVOPROD-700557

PATIENT
  Age: 80 Year
  Sex: Female

DRUGS (1)
  1. XULTOPHY 100/3.6 [Suspect]
     Active Substance: INSULIN DEGLUDEC\LIRAGLUTIDE
     Indication: TYPE 2 DIABETES MELLITUS
     Dosage: UNK
     Route: 058
     Dates: start: 2018, end: 201909

REACTIONS (7)
  - Weight decreased [Not Recovered/Not Resolved]
  - Syncope [Recovered/Resolved]
  - Dry mouth [Recovering/Resolving]
  - Nasal discomfort [Recovering/Resolving]
  - Cheilitis [Recovering/Resolving]
  - Cystitis [Recovered/Resolved]
  - Stomatitis [Recovering/Resolving]

NARRATIVE: CASE EVENT DATE: 201909
